FAERS Safety Report 5927574-3 (Version None)
Quarter: 2008Q4

REPORT INFORMATION
  Report Type: 
  Country: None (occurrence: None)
  Receive Date: 20081021
  Receipt Date: 20081021
  Transmission Date: 20090506
  Serious: Yes (Other)
  Sender: FDA-Public Use
  Company Number: None

PATIENT
  Age: 30 Year
  Sex: Female
  Weight: 67.1324 kg

DRUGS (1)
  1. BENZONATATE [Suspect]
     Indication: INFLUENZA
     Dosage: ONE CAPSULE 3 TIMES DAILY PO
     Route: 048
     Dates: start: 20080908, end: 20080909

REACTIONS (3)
  - CONDITION AGGRAVATED [None]
  - DRUG INEFFECTIVE [None]
  - HAEMOPTYSIS [None]
